FAERS Safety Report 21245073 (Version 4)
Quarter: 2022Q4

REPORT INFORMATION
  Report Type: Report from Study
  Country: HU (occurrence: HU)
  Receive Date: 20220823
  Receipt Date: 20221027
  Transmission Date: 20230112
  Serious: Yes (Hospitalization, Other)
  Sender: FDA-Public Use
  Company Number: HU-ALNYLAM PHARMACEUTICALS, INC.-ALN-2022-002774

PATIENT

DRUGS (15)
  1. VUTRISIRAN SODIUM [Suspect]
     Active Substance: VUTRISIRAN SODIUM
     Indication: Cardiac amyloidosis
     Dosage: 25 MILLIGRAM, Q3M
     Route: 058
     Dates: start: 20221010
  2. VUTRISIRAN SODIUM [Suspect]
     Active Substance: VUTRISIRAN SODIUM
     Dosage: 25 MILLIGRAM, Q3M
     Route: 058
     Dates: start: 20220502, end: 20220502
  3. VUTRISIRAN SODIUM [Suspect]
     Active Substance: VUTRISIRAN SODIUM
     Dosage: 25 MILLIGRAM, Q3M
     Route: 058
     Dates: start: 20210303, end: 20210303
  4. ATORVASTATIN [Concomitant]
     Active Substance: ATORVASTATIN
     Indication: Hypercholesterolaemia
     Dosage: 40 MILLIGRAM, QD
     Route: 048
     Dates: start: 2019
  5. CARVEDILOL [Concomitant]
     Active Substance: CARVEDILOL
     Indication: Cardiac disorder
     Dosage: 12.5 MILLIGRAM, QD
     Route: 048
     Dates: start: 2019
  6. EPLERENONE [Concomitant]
     Active Substance: EPLERENONE
     Indication: Cardiac disorder
     Dosage: 25 MILLIGRAM, QD
     Route: 048
     Dates: start: 2019
  7. FUROSEMIDE [Concomitant]
     Active Substance: FUROSEMIDE
     Indication: Cardiac disorder
     Dosage: 20 MILLIGRAM, QD
     Route: 048
     Dates: start: 2019
  8. PERINDOPRIL [Concomitant]
     Active Substance: PERINDOPRIL
     Indication: Cardiac disorder
     Dosage: 5 MILLIGRAM, QD
     Route: 048
     Dates: start: 2019
  9. APIXABAN [Concomitant]
     Active Substance: APIXABAN
     Indication: Cardiac disorder
     Dosage: 5 MILLIGRAM, BID
     Route: 048
     Dates: start: 2019, end: 20220626
  10. PANTOPRAZOLE [Concomitant]
     Active Substance: PANTOPRAZOLE
     Indication: Prophylaxis against gastrointestinal ulcer
     Dosage: 40 MILLIGRAM, BID
     Route: 048
     Dates: start: 20220628
  11. PANTOPRAZOLE [Concomitant]
     Active Substance: PANTOPRAZOLE
     Indication: Gastric ulcer
     Dosage: 40 MILLIGRAM, QD
     Route: 048
     Dates: start: 201912, end: 20220627
  12. PANTOPRAZOLE [Concomitant]
     Active Substance: PANTOPRAZOLE
     Indication: Gastric ulcer haemorrhage
  13. EMPAGLIFLOZIN [Concomitant]
     Active Substance: EMPAGLIFLOZIN
     Indication: Type 2 diabetes mellitus
     Dosage: 10 MILLIGRAM, QD
     Route: 048
     Dates: start: 20210420
  14. METFORMIN [Concomitant]
     Active Substance: METFORMIN HYDROCHLORIDE
     Indication: Type 2 diabetes mellitus
     Dosage: 500 MILLIGRAM, QD
     Route: 048
     Dates: start: 20220126
  15. ENOXAPARIN SODIUM [Concomitant]
     Active Substance: ENOXAPARIN SODIUM
     Indication: Cardiac disorder
     Dosage: 0.6 MILLILITER, QD
     Route: 058
     Dates: start: 20220705

REACTIONS (2)
  - Gastric ulcer haemorrhage [Recovered/Resolved]
  - Gastric ulcer [Recovered/Resolved]

NARRATIVE: CASE EVENT DATE: 20220628
